FAERS Safety Report 8368412-1 (Version None)
Quarter: 2012Q2

REPORT INFORMATION
  Report Type: 
  Country: None (occurrence: None)
  Receive Date: 20120517
  Receipt Date: 20120507
  Transmission Date: 20120825
  Serious: Yes (Hospitalization)
  Sender: FDA-Public Use
  Company Number: US-ELI_LILLY_AND_COMPANY-US200910007766

PATIENT
  Sex: Female
  Weight: 89.342 kg

DRUGS (15)
  1. LORAZEPAM [Concomitant]
     Indication: NAUSEA
     Dates: start: 20090920
  2. ASPIRIN [Concomitant]
     Indication: CORONARY ARTERY BYPASS
     Dosage: UNK, UNK
     Dates: start: 20010101
  3. VYTORIN [Concomitant]
  4. VITAMIN TAB [Concomitant]
  5. PEMETREXED [Suspect]
     Dosage: 375 MG/M2, EVERY 21 DAYS
     Route: 042
  6. CARBOPLATIN [Suspect]
     Indication: NON-SMALL CELL LUNG CANCER
     Dosage: 6 AUC, EVERY 21 DAYS
     Route: 042
     Dates: start: 20090918
  7. PEMETREXED [Suspect]
     Indication: NON-SMALL CELL LUNG CANCER
     Dosage: 500 MG/M2, EVERY 21 DAYS
     Route: 042
     Dates: start: 20090918
  8. METOPROLOL [Concomitant]
     Indication: HYPERTENSION
     Dates: start: 20010101
  9. ZOLOFT [Concomitant]
     Dosage: 50 MG, DAILY (1/D)
     Route: 048
     Dates: start: 20091029
  10. BEVACIZUMAB [Suspect]
     Indication: NON-SMALL CELL LUNG CANCER
     Dosage: 15 MG/KG, OTHER
     Route: 042
     Dates: start: 20090918
  11. PRILOSEC [Concomitant]
     Indication: GASTROOESOPHAGEAL REFLUX DISEASE
     Dates: start: 20090601
  12. LEVOTHYROXINE SODIUM [Concomitant]
     Indication: HYPOTHYROIDISM
     Dates: start: 20090101
  13. AMLODIPINE BESYLATE [Concomitant]
  14. CARBOPLATIN [Suspect]
     Dosage: 5 AUC, EVERY 21 DAYS
     Route: 042
  15. FOLIC ACID [Concomitant]
     Indication: PROPHYLAXIS
     Dates: start: 20090903

REACTIONS (2)
  - DEHYDRATION [None]
  - ANAEMIA [None]
